FAERS Safety Report 9557174 (Version 2)
Quarter: 2013Q4

REPORT INFORMATION
  Report Type: Spontaneous
  Country: IN (occurrence: IN)
  Receive Date: 20130926
  Receipt Date: 20131113
  Transmission Date: 20140711
  Serious: Yes (Other)
  Sender: FDA-Public Use
  Company Number: IN-009507513-1309IND011031

PATIENT
  Age: 55 Year
  Sex: Male

DRUGS (1)
  1. JANUVIA [Suspect]
     Dosage: STRENGHT DOSE: 100
     Route: 048
     Dates: end: 201308

REACTIONS (3)
  - Hepatic cancer [Not Recovered/Not Resolved]
  - Hyperchlorhydria [Unknown]
  - Abdominal pain upper [Unknown]
